FAERS Safety Report 8066912-5 (Version None)
Quarter: 2012Q1

REPORT INFORMATION
  Report Type: 
  Country: None (occurrence: None)
  Receive Date: 20120124
  Receipt Date: 20120119
  Transmission Date: 20120608
  Serious: Yes (Other)
  Sender: FDA-Public Use
  Company Number: PHHY2011CN110786

PATIENT
  Age: 76 Year
  Sex: Male

DRUGS (4)
  1. CLOPIDOGREL [Suspect]
     Indication: ANTIPLATELET THERAPY
     Dosage: 75 MG, QD
  2. ACETYLSALICYLIC ACID SRT [Suspect]
     Indication: ANTIPLATELET THERAPY
     Dosage: 100 MG, QD
  3. ATORVASTATIN [Suspect]
     Indication: HYPOLIPIDAEMIA
     Dosage: 10 MG, QD
  4. HEPARIN [Suspect]
     Dosage: 6150 U, UNK

REACTIONS (5)
  - PAIN IN EXTREMITY [None]
  - OEDEMA PERIPHERAL [None]
  - CONTUSION [None]
  - SPONTANEOUS HAEMATOMA [None]
  - SWELLING [None]
